FAERS Safety Report 9150639 (Version 1)
Quarter: 2013Q1

REPORT INFORMATION
  Report Type: Spontaneous
  Country: US (occurrence: None)
  Receive Date: 20130305
  Receipt Date: 20130305
  Transmission Date: 20140127
  Serious: Yes (Other)
  Sender: FDA-Public Use
  Company Number: None

PATIENT
  Age: 60 Year
  Sex: Female
  Weight: 58.97 kg

DRUGS (1)
  1. ESCITALOPRAM 10MG AUROBIUDO PHARMA [Suspect]
     Dosage: EXPIRATION 08-FEB-2014

REACTIONS (7)
  - Product substitution issue [None]
  - Anxiety [None]
  - Depression [None]
  - Hot flush [None]
  - Headache [None]
  - Muscular weakness [None]
  - Nausea [None]
